FAERS Safety Report 14790498 (Version 4)
Quarter: 2020Q3

REPORT INFORMATION
  Report Type: Report from Study
  Country: FR (occurrence: FR)
  Receive Date: 20180423
  Receipt Date: 20200731
  Transmission Date: 20201102
  Serious: Yes (Hospitalization)
  Sender: FDA-Public Use
  Company Number: FR-JNJFOC-20180426074

PATIENT
  Age: 65 Year
  Sex: Female
  Weight: 90 kg

DRUGS (20)
  1. LOXEN [Concomitant]
     Dates: start: 20180215
  2. PRIMPERAN [Concomitant]
     Active Substance: METOCLOPRAMIDE HYDROCHLORIDE
     Dates: start: 20171201
  3. RETINOL [Concomitant]
     Active Substance: RETINOL
     Dates: start: 20180216
  4. NIVOLUMAB [Suspect]
     Active Substance: NIVOLUMAB
     Indication: TRIPLE NEGATIVE BREAST CANCER
     Route: 042
     Dates: start: 20171123, end: 20180301
  5. COZAAR [Concomitant]
     Active Substance: LOSARTAN POTASSIUM
     Dates: start: 201803
  6. GAVISCON [Concomitant]
     Active Substance: ALUMINUM HYDROXIDE\MAGNESIUM CARBONATE
     Dates: start: 20171214
  7. PANTOPRAZOLE [Concomitant]
     Active Substance: PANTOPRAZOLE
     Dates: start: 20171221
  8. TRAMADOL. [Concomitant]
     Active Substance: TRAMADOL
     Dates: start: 20171116
  9. HYALUGEL [Concomitant]
     Dates: start: 20180309
  10. ZOVIRAX [Concomitant]
     Active Substance: ACYCLOVIR
     Dates: start: 20180312
  11. AERIUS [Concomitant]
     Dates: start: 20180328
  12. DARATUMUMAB [Suspect]
     Active Substance: DARATUMUMAB
     Indication: TRIPLE NEGATIVE BREAST CANCER
     Route: 042
     Dates: start: 20171109, end: 20180301
  13. ZOMETA [Concomitant]
     Active Substance: ZOLEDRONIC ACID
     Dates: start: 20171129
  14. VASELINE PURE [Concomitant]
     Active Substance: PETROLATUM
     Dates: start: 20180216
  15. LEVOTHYROX [Concomitant]
     Active Substance: LEVOTHYROXINE
     Dates: start: 20180301
  16. PARACETAMOL [Concomitant]
     Active Substance: ACETAMINOPHEN
  17. VOGALENE [Concomitant]
     Active Substance: METOPIMAZINE
     Dates: start: 20171201
  18. BICALAN [Concomitant]
     Dates: start: 20171109
  19. ZOPHREN [Concomitant]
     Active Substance: ONDANSETRON
     Dates: start: 20171221
  20. FUCIDINE [Concomitant]
     Dates: start: 20180309

REACTIONS (1)
  - Rash papular [Recovered/Resolved]

NARRATIVE: CASE EVENT DATE: 20180402
